FAERS Safety Report 17288306 (Version 1)
Quarter: 2020Q1

REPORT INFORMATION
  Report Type: Spontaneous
  Country: CA (occurrence: CA)
  Receive Date: 20200120
  Receipt Date: 20200120
  Transmission Date: 20200409
  Serious: Yes (Life-Threatening, Hospitalization)
  Sender: FDA-Public Use
  Company Number: CA-ASTRAZENECA-2020SE07335

PATIENT
  Age: 73 Year
  Sex: Female
  Weight: 78 kg

DRUGS (10)
  1. AMLODIPINE [Concomitant]
     Active Substance: AMLODIPINE BESYLATE
  2. ATORVASTATIN [Concomitant]
     Active Substance: ATORVASTATIN
  3. FORXIGA [Suspect]
     Active Substance: DAPAGLIFLOZIN
     Indication: TYPE 2 DIABETES MELLITUS
     Route: 048
  4. FERROUS FUMARATE [Concomitant]
     Active Substance: FERROUS FUMARATE
  5. PANTOPRAZOLE [Concomitant]
     Active Substance: PANTOPRAZOLE
  6. HYDROCHLOROTHIAZIDE. [Concomitant]
     Active Substance: HYDROCHLOROTHIAZIDE
  7. METFORMIN/SITAGLIPTINE [Concomitant]
  8. CANDESARTAN CILEXETIL. [Concomitant]
     Active Substance: CANDESARTAN CILEXETIL
  9. GLICLAZIDE [Concomitant]
     Active Substance: GLICLAZIDE
  10. LEVOTHYROXINE. [Concomitant]
     Active Substance: LEVOTHYROXINE

REACTIONS (10)
  - Nausea [Recovering/Resolving]
  - Shock [Recovering/Resolving]
  - Hypovolaemia [Recovering/Resolving]
  - Euglycaemic diabetic ketoacidosis [Recovering/Resolving]
  - Malaise [Recovering/Resolving]
  - Acidosis [Recovering/Resolving]
  - Gastroenteritis [Recovering/Resolving]
  - Hypophagia [Recovering/Resolving]
  - Acute kidney injury [Recovering/Resolving]
  - Diarrhoea [Recovering/Resolving]
